FAERS Safety Report 7302509-X (Version None)
Quarter: 2011Q1

REPORT INFORMATION
  Report Type: 
  Country: None (occurrence: None)
  Receive Date: 20110218
  Receipt Date: 20110211
  Transmission Date: 20110831
  Serious: Yes (Hospitalization, Other)
  Sender: FDA-Public Use
  Company Number: BR-ELI_LILLY_AND_COMPANY-BR201102002373

PATIENT
  Sex: Female
  Weight: 54 kg

DRUGS (4)
  1. CALCIUM [Concomitant]
     Indication: BONE DISORDER
     Dosage: UNK, 2/D
     Route: 065
  2. GLUCOSAMINE SULFATE W/CHONDROITIN [Concomitant]
     Indication: OSTEOARTHRITIS
     Dosage: UNK, DAILY (1/D)
     Route: 065
  3. HUMALOG [Suspect]
     Indication: TYPE 1 DIABETES MELLITUS
     Dosage: 22 IU, DAILY (1/D)
     Route: 065
     Dates: start: 20000101
  4. SINVASTATINA [Concomitant]
     Indication: PROPHYLAXIS
     Dosage: 5 MG, DAILY (1/D)
     Route: 065

REACTIONS (6)
  - HYPERGLYCAEMIA [None]
  - RETCHING [None]
  - HYPOGLYCAEMIA [None]
  - DRUG INEFFECTIVE [None]
  - BLOOD GLUCOSE INCREASED [None]
  - FEELING OF DESPAIR [None]
